FAERS Safety Report 17462871 (Version 6)
Quarter: 2020Q2

REPORT INFORMATION
  Report Type: Spontaneous
  Country: DE (occurrence: DE)
  Receive Date: 20200226
  Receipt Date: 20200630
  Transmission Date: 20200713
  Serious: Yes (Hospitalization, Other)
  Sender: FDA-Public Use
  Company Number: NVSC2020DE045563

PATIENT
  Sex: Male
  Weight: 96 kg

DRUGS (8)
  1. VALSARTAN - 1 A PHARMA PLUS 160 MG/12,5 MG FILMTABLETTEN [Suspect]
     Active Substance: HYDROCHLOROTHIAZIDE\VALSARTAN
     Dosage: 1 DF, QD (MORNING) (HYDROCHLOROTHIAZIDE 160 MG, VALSARTAN 12.5 MG)
     Route: 065
     Dates: end: 201606
  2. ACIC [Concomitant]
     Active Substance: ACYCLOVIR
     Indication: PRODUCT USED FOR UNKNOWN INDICATION
     Dosage: 1 DF, BID
     Route: 065
  3. COTRIMOXAZOLE [Suspect]
     Active Substance: SULFAMETHOXAZOLE\TRIMETHOPRIM
     Indication: PRODUCT USED FOR UNKNOWN INDICATION
     Route: 065
  4. CISPLATIN. [Suspect]
     Active Substance: CISPLATIN
     Indication: DISEASE RECURRENCE
     Route: 065
  5. VALSARTAN HEXAL COMP 160 MG/12,5 MG FILMTABLETTEN [Suspect]
     Active Substance: HYDROCHLOROTHIAZIDE\VALSARTAN
     Indication: HYPERTENSION
     Dosage: (HYDROCHLOROTHIAZIDE 160, VALSARTAN 12.5) (UNITS NOT PROVIDED)
     Route: 065
  6. VALSARTAN - 1 A PHARMA PLUS 160 MG/12,5 MG FILMTABLETTEN [Suspect]
     Active Substance: HYDROCHLOROTHIAZIDE\VALSARTAN
     Indication: HYPERTENSION
     Dosage: 1 DF, QD (MORNING) (HYDROCHLOROTHIAZIDE 160 MG, VALSARTAN 12.5 MG)
     Route: 065
     Dates: start: 201401, end: 2014
  7. ACIC [Concomitant]
     Active Substance: ACYCLOVIR
     Dosage: 2 DF, QD
     Route: 065
  8. PANTOZOL [Concomitant]
     Active Substance: PANTOPRAZOLE SODIUM
     Indication: PRODUCT USED FOR UNKNOWN INDICATION
     Dosage: 40 MG, QD
     Route: 065

REACTIONS (25)
  - Fatigue [Not Recovered/Not Resolved]
  - Non-Hodgkin^s lymphoma [Unknown]
  - Ventricular dysfunction [Unknown]
  - Dyspnoea [Unknown]
  - Anaemia [Not Recovered/Not Resolved]
  - Bronchitis [Unknown]
  - Basal cell carcinoma [Unknown]
  - Benign prostatic hyperplasia [Unknown]
  - Exercise tolerance decreased [Not Recovered/Not Resolved]
  - Disease recurrence [Unknown]
  - Mitral valve incompetence [Unknown]
  - Ascites [Unknown]
  - Night sweats [Unknown]
  - Acute kidney injury [Unknown]
  - Immunodeficiency [Not Recovered/Not Resolved]
  - Hypogonadism [Not Recovered/Not Resolved]
  - Mass [Unknown]
  - Nocturia [Unknown]
  - Oedema peripheral [Unknown]
  - Polyneuropathy [Not Recovered/Not Resolved]
  - Nasopharyngitis [Unknown]
  - Skin disorder [Unknown]
  - Cardiac failure [Not Recovered/Not Resolved]
  - Cough [Unknown]
  - Productive cough [Unknown]

NARRATIVE: CASE EVENT DATE: 201411
